FAERS Safety Report 9683513 (Version 1)
Quarter: 2013Q4

REPORT INFORMATION
  Report Type: Spontaneous
  Country: US (occurrence: US)
  Receive Date: 20131112
  Receipt Date: 20131112
  Transmission Date: 20140711
  Serious: Yes (Disabling)
  Sender: FDA-Public Use
  Company Number: US-ASTRAZENECA-2013SE81752

PATIENT
  Age: 62 Year
  Sex: Female
  Weight: 72.6 kg

DRUGS (1)
  1. SYMBICORT [Suspect]
     Indication: ASTHMA
     Dosage: 160  4.5MCG 2 PUFFS BID
     Route: 055
     Dates: start: 2013

REACTIONS (8)
  - Activities of daily living impaired [Unknown]
  - Asthma [Unknown]
  - Abasia [Unknown]
  - Chest discomfort [Unknown]
  - Dyspnoea [Unknown]
  - Nasopharyngitis [Unknown]
  - Chest pain [Unknown]
  - Circumstance or information capable of leading to device use error [Unknown]
